FAERS Safety Report 23811693 (Version 1)
Quarter: 2024Q2

REPORT INFORMATION
  Report Type: Spontaneous
  Country: US (occurrence: None)
  Receive Date: 20240503
  Receipt Date: 20240503
  Transmission Date: 20240716
  Serious: Yes (Death)
  Sender: FDA-Public Use
  Company Number: US-ROCHE-3552643

PATIENT
  Sex: Male
  Weight: 179 kg

DRUGS (1)
  1. TAMIFLU [Suspect]
     Active Substance: OSELTAMIVIR PHOSPHATE
     Indication: Product used for unknown indication
     Route: 065

REACTIONS (4)
  - Blister [Unknown]
  - Ulcer [Unknown]
  - Skin exfoliation [Unknown]
  - Stevens-Johnson syndrome [Fatal]
